FAERS Safety Report 6153393-1 (Version None)
Quarter: 2009Q2

REPORT INFORMATION
  Report Type: 
  Country: None (occurrence: None)
  Receive Date: 20090413
  Receipt Date: 20090402
  Transmission Date: 20091009
  Serious: Yes (Other)
  Sender: FDA-Public Use
  Company Number: CN-GENENTECH-279539

PATIENT
  Age: 37 Year
  Sex: Female

DRUGS (5)
  1. HERCEPTIN [Suspect]
     Indication: BREAST CANCER
     Dosage: UNK
     Route: 041
     Dates: start: 20070201, end: 20080101
  2. HERCEPTIN [Suspect]
     Dosage: UNK
     Route: 041
     Dates: start: 20090301
  3. ADRIAMYCIN RDF [Concomitant]
     Indication: CHEMOTHERAPY
     Dosage: UNK
     Dates: start: 20070101
  4. CYTOXAN [Concomitant]
     Indication: CHEMOTHERAPY
     Dosage: UNK
     Dates: start: 20070101
  5. TAXOL [Concomitant]
     Indication: CHEMOTHERAPY
     Dosage: UNK
     Dates: start: 20070101

REACTIONS (1)
  - BREAST CANCER [None]
